FAERS Safety Report 13390569 (Version 1)
Quarter: 2017Q1

REPORT INFORMATION
  Report Type: Spontaneous
  Country: JP (occurrence: JP)
  Receive Date: 20170331
  Receipt Date: 20170331
  Transmission Date: 20170429
  Serious: Yes (Hospitalization)
  Sender: FDA-Public Use
  Company Number: JP-ELI_LILLY_AND_COMPANY-JP201703009901

PATIENT
  Age: 55 Year
  Sex: Female
  Weight: 38.9 kg

DRUGS (18)
  1. DOCETAXEL. [Suspect]
     Active Substance: DOCETAXEL
     Indication: LUNG ADENOCARCINOMA STAGE IV
     Dosage: 75 MG, OTHER
     Route: 042
     Dates: start: 20160923, end: 20160923
  2. CYRAMZA [Suspect]
     Active Substance: RAMUCIRUMAB
     Indication: LUNG ADENOCARCINOMA STAGE IV
     Dosage: 380 MG, OTHER
     Route: 042
     Dates: start: 20160923, end: 20160923
  3. MAGMITT [Concomitant]
     Active Substance: MAGNESIUM OXIDE
  4. SENNOSIDE                          /00571901/ [Concomitant]
     Active Substance: SENNOSIDES A AND B
  5. NOVAMIN                            /00013304/ [Concomitant]
     Active Substance: PROCHLORPERAZINE MALEATE
  6. MIYA-BM [Concomitant]
     Active Substance: CLOSTRIDIUM BUTYRICUM SPORES STRAIN M-55
  7. GRANISETRON [Concomitant]
     Active Substance: GRANISETRON
     Route: 042
  8. RIZE                               /00624801/ [Concomitant]
     Active Substance: CLOTIAZEPAM
  9. RINDERON V [Concomitant]
     Active Substance: BETAMETHASONE VALERATE
  10. LOXOPROFEN [Concomitant]
     Active Substance: LOXOPROFEN
  11. CYRAMZA [Suspect]
     Active Substance: RAMUCIRUMAB
     Dosage: 310 MG, OTHER
     Route: 042
     Dates: start: 20161020, end: 20161020
  12. OXINORM                            /00045603/ [Concomitant]
     Active Substance: OXYCODONE HYDROCHLORIDE
  13. FENTOS [Concomitant]
     Active Substance: FENTANYL
  14. POLARAMINE [Concomitant]
     Active Substance: DEXCHLORPHENIRAMINE MALEATE
     Route: 042
  15. LUNESTA [Concomitant]
     Active Substance: ESZOPICLONE
  16. DEXART [Concomitant]
     Active Substance: DEXAMETHASONE SODIUM PHOSPHATE
  17. DOCETAXEL. [Suspect]
     Active Substance: DOCETAXEL
     Dosage: 60 MG, OTHER
     Route: 042
     Dates: start: 20161020, end: 20161020
  18. REBAMIPIDE [Concomitant]
     Active Substance: REBAMIPIDE

REACTIONS (1)
  - Pneumonitis [Recovering/Resolving]

NARRATIVE: CASE EVENT DATE: 20161031
